FAERS Safety Report 7793457-X (Version None)
Quarter: 2011Q4

REPORT INFORMATION
  Report Type: 
  Country: None (occurrence: None)
  Receive Date: 20111003
  Receipt Date: 20110928
  Transmission Date: 20120403
  Serious: Yes (Death, Hospitalization)
  Sender: FDA-Public Use
  Company Number: PHHY2011FR58712

PATIENT
  Weight: 67 kg

DRUGS (4)
  1. LASIX [Concomitant]
     Dosage: 80 MG, DAILY
     Route: 042
     Dates: start: 20110623
  2. EVEROLIMUS [Suspect]
     Indication: RENAL CANCER METASTATIC
     Dosage: 10 MG DAILY
     Route: 048
     Dates: start: 20110428
  3. METFORMIN HCL [Suspect]
     Dosage: 500 MG, BID
     Route: 048
  4. BIONOLYTE [Concomitant]
     Dosage: 2 L, DAILY
     Route: 042
     Dates: start: 20110623

REACTIONS (4)
  - NEOPLASM PROGRESSION [None]
  - RENAL FAILURE [None]
  - POLYURIA [None]
  - NEOPLASM MALIGNANT [None]
